FAERS Safety Report 8277882-9 (Version None)
Quarter: 2012Q2

REPORT INFORMATION
  Report Type: 
  Country: None (occurrence: None)
  Receive Date: 20120412
  Receipt Date: 20120411
  Transmission Date: 20120825
  Serious: Yes (Death, Other)
  Sender: FDA-Public Use
  Company Number: AU-BRACCO-000205

PATIENT
  Sex: Female

DRUGS (3)
  1. ISOVUE-370 [Suspect]
     Indication: COMPUTERISED TOMOGRAM
     Route: 042
     Dates: start: 20120217, end: 20120217
  2. AMOXIL [Concomitant]
  3. ISOVUE-370 [Suspect]
     Indication: OVARIAN CANCER
     Route: 042
     Dates: start: 20120217, end: 20120217

REACTIONS (1)
  - SHOCK [None]
